FAERS Safety Report 10082302 (Version 1)
Quarter: 2014Q2

REPORT INFORMATION
  Report Type: Spontaneous
  Country: US (occurrence: None)
  Receive Date: 20140414
  Receipt Date: 20140414
  Transmission Date: 20141212
  Serious: Yes (Other)
  Sender: FDA-Public Use
  Company Number: None

PATIENT
  Age: 58 Year
  Sex: Male
  Weight: 68.95 kg

DRUGS (1)
  1. LAMOTRIGINE [Suspect]
     Indication: CONVULSION
     Dosage: 4 PILLS
     Route: 048

REACTIONS (4)
  - Diplopia [None]
  - Dizziness [None]
  - Balance disorder [None]
  - Product substitution issue [None]
